FAERS Safety Report 8240203-1 (Version None)
Quarter: 2012Q1

REPORT INFORMATION
  Report Type: 
  Country: None (occurrence: None)
  Receive Date: 20120328
  Receipt Date: 20120320
  Transmission Date: 20120608
  Serious: Yes (Hospitalization, Other)
  Sender: FDA-Public Use
  Company Number: CA-JNJFOC-20120204261

PATIENT
  Sex: Male
  Weight: 47 kg

DRUGS (4)
  1. REMICADE [Suspect]
     Indication: CROHN'S DISEASE
     Route: 042
  2. REMICADE [Suspect]
     Dosage: 52 WEEKS
     Route: 042
     Dates: start: 20081121
  3. FLAGYL [Concomitant]
     Route: 065
  4. CIPROFLOXACIN HCL [Concomitant]
     Route: 065

REACTIONS (2)
  - INTESTINAL OPERATION [None]
  - FAECAL INCONTINENCE [None]
